FAERS Safety Report 17058305 (Version 1)
Quarter: 2019Q4

REPORT INFORMATION
  Report Type: Spontaneous
  Country: US (occurrence: US)
  Receive Date: 20191121
  Receipt Date: 20191121
  Transmission Date: 20200122
  Serious: Yes (Hospitalization)
  Sender: FDA-Public Use
  Company Number: None

PATIENT
  Age: 26 Year
  Sex: Female
  Weight: 67.5 kg

DRUGS (1)
  1. MELOXICAM 7.5MG TAB XYD [Suspect]
     Active Substance: MELOXICAM
     Indication: SCIATIC NERVE NEUROPATHY
     Dosage: ?          QUANTITY:1 CAPSULE(S);?
     Route: 048
     Dates: start: 20191119, end: 20191119

REACTIONS (7)
  - Abdominal rigidity [None]
  - Pain [None]
  - Fatigue [None]
  - Diarrhoea [None]
  - Nausea [None]
  - Gait disturbance [None]
  - Abdominal pain [None]

NARRATIVE: CASE EVENT DATE: 20191120
